FAERS Safety Report 24544720 (Version 1)
Quarter: 2024Q4

REPORT INFORMATION
  Report Type: Report from Study
  Country: US (occurrence: US)
  Receive Date: 20241024
  Receipt Date: 20241024
  Transmission Date: 20250115
  Serious: Yes (Other)
  Sender: ALEXION PHARMACEUTICALS
  Company Number: US-ALXN-202410USA014882US

PATIENT

DRUGS (4)
  1. STRENSIQ [Suspect]
     Active Substance: ASFOTASE ALFA
     Dosage: UNK
     Route: 065
  2. STRENSIQ [Suspect]
     Active Substance: ASFOTASE ALFA
     Dosage: UNK
  3. STRENSIQ [Suspect]
     Active Substance: ASFOTASE ALFA
     Dosage: UNK
     Route: 065
  4. STRENSIQ [Suspect]
     Active Substance: ASFOTASE ALFA
     Dosage: UNK

REACTIONS (9)
  - COVID-19 [Unknown]
  - Arthralgia [Unknown]
  - Back pain [Unknown]
  - Tooth fracture [Unknown]
  - Aortic aneurysm [Unknown]
  - Nephrocalcinosis [Unknown]
  - Nephrolithiasis [Unknown]
  - Kyphosis [Unknown]
  - Joint range of motion decreased [Unknown]
